FAERS Safety Report 8493436-3 (Version None)
Quarter: 2012Q3

REPORT INFORMATION
  Report Type: 
  Country: None (occurrence: None)
  Receive Date: 20120706
  Receipt Date: 20120622
  Transmission Date: 20120928
  Serious: Yes (Congenital Anomaly, Other)
  Sender: FDA-Public Use
  Company Number: DE-WATSON-2012-10945

PATIENT
  Sex: Male
  Weight: 2.24 kg

DRUGS (8)
  1. PROTAPHANE [Concomitant]
     Indication: GESTATIONAL DIABETES
     Dosage: 20 [IE/D (BIS 6) ]/SINCE MARCH, THE 4TH 20 IE/D (10-0-10), BEFORE THAT 6-0-0 IE/D
     Route: 064
     Dates: start: 20100217, end: 20100316
  2. OMEPRAZOLE [Suspect]
     Indication: GASTRITIS PROPHYLAXIS
     Dosage: 20 [MG/D ]
     Route: 064
  3. RITUXAN [Suspect]
     Indication: IDIOPATHIC THROMBOCYTOPENIC PURPURA
     Dosage: 800 [MG/D ]/ ON JAN., THE 24TH: 800MG, THE OTHER 3 TIMES 700MG
     Route: 064
     Dates: start: 20100124, end: 20100215
  4. INTRATECT [Suspect]
     Indication: IDIOPATHIC THROMBOCYTOPENIC PURPURA
     Dosage: UNK
     Route: 064
     Dates: start: 20100312, end: 20100314
  5. PREDNISONE TAB [Concomitant]
     Indication: IDIOPATHIC THROMBOCYTOPENIC PURPURA
     Dosage: UNK
     Route: 064
     Dates: start: 20091112, end: 20091116
  6. PREDNISONE TAB [Concomitant]
     Indication: IDIOPATHIC THROMBOCYTOPENIC PURPURA
     Dosage: 40 [MG/D (BIS 20) ]/ CHANGING DOSAGE BETWEEN 20, 35 OR 40 MG/D
     Route: 064
     Dates: start: 20091215, end: 20100316
  7. FOLIC ACID [Concomitant]
     Indication: PROPHYLAXIS OF NEURAL TUBE DEFECT
     Dosage: 0.4 [MG/D ]
     Route: 064
  8. FORTECORTIN                        /00016001/ [Concomitant]
     Indication: IDIOPATHIC THROMBOCYTOPENIC PURPURA
     Dosage: 80 [MG/D (2X40)
     Route: 064
     Dates: start: 20100312, end: 20100314

REACTIONS (2)
  - B-LYMPHOCYTE COUNT DECREASED [None]
  - VENTRICULAR SEPTAL DEFECT [None]
